FAERS Safety Report 7034711-9 (Version None)
Quarter: 2010Q4

REPORT INFORMATION
  Report Type: 
  Country: None (occurrence: None)
  Receive Date: 20101008
  Receipt Date: 20100930
  Transmission Date: 20110411
  Serious: Yes (Other)
  Sender: FDA-Public Use
  Company Number: US-RB-013062-10

PATIENT
  Sex: Female

DRUGS (4)
  1. SUBOXONE [Suspect]
     Indication: DRUG DEPENDENCE
     Route: 060
     Dates: start: 20080801, end: 20100101
  2. SUBOXONE [Suspect]
     Route: 060
     Dates: start: 20100910
  3. SUBUTEX [Suspect]
     Indication: DRUG DEPENDENCE
     Route: 060
     Dates: start: 20100101, end: 20100701
  4. SUBUTEX [Suspect]
     Route: 060
     Dates: start: 20100701, end: 20100909

REACTIONS (2)
  - DRUG EXPOSURE DURING PREGNANCY [None]
  - PREMATURE LABOUR [None]
